FAERS Safety Report 5805879-4 (Version None)
Quarter: 2008Q3

REPORT INFORMATION
  Report Type: 
  Country: None (occurrence: None)
  Receive Date: 20080709
  Receipt Date: 20080709
  Transmission Date: 20090109
  Serious: Yes (Hospitalization)
  Sender: FDA-Public Use
  Company Number: None

PATIENT
  Age: 73 Year
  Sex: Male
  Weight: 85 kg

DRUGS (1)
  1. NAPROXEN [Suspect]
     Indication: PAIN
     Dosage: 1875 MG EVERYDAY PO
     Route: 048
     Dates: start: 20080603, end: 20080611

REACTIONS (3)
  - ANAEMIA [None]
  - GASTROINTESTINAL ULCER [None]
  - MELAENA [None]
